FAERS Safety Report 17684527 (Version 1)
Quarter: 2020Q2

REPORT INFORMATION
  Report Type: Spontaneous
  Country: ES (occurrence: ES)
  Receive Date: 20200420
  Receipt Date: 20200420
  Transmission Date: 20200714
  Serious: Yes (Other)
  Sender: FDA-Public Use
  Company Number: NVSC2020ES104007

PATIENT
  Age: 48 Year
  Sex: Male

DRUGS (1)
  1. SECUKINUMAB. [Suspect]
     Active Substance: SECUKINUMAB
     Indication: PSORIASIS
     Dosage: UNK
     Route: 058

REACTIONS (5)
  - Mouth ulceration [Recovering/Resolving]
  - Uveitis [Recovering/Resolving]
  - Rash pustular [Recovering/Resolving]
  - Behcet^s syndrome [Recovering/Resolving]
  - Anal ulcer [Recovering/Resolving]
